FAERS Safety Report 12230418 (Version 1)
Quarter: 2016Q2

REPORT INFORMATION
  Report Type: Spontaneous
  Country: US (occurrence: US)
  Receive Date: 20160401
  Receipt Date: 20160401
  Transmission Date: 20160815
  Serious: No
  Sender: FDA-Public Use
  Company Number: US-ENDO PHARMACEUTICALS INC.-2015-005061

PATIENT
  Sex: Male
  Weight: 90.8 kg

DRUGS (2)
  1. FUROSEMIDE TABLETS 20MG [Suspect]
     Active Substance: FUROSEMIDE
     Indication: SWELLING
     Route: 048
  2. FUROSEMIDE TABLETS 20MG [Suspect]
     Active Substance: FUROSEMIDE
     Indication: HYPERTENSION
     Route: 048
     Dates: start: 2014, end: 20151211

REACTIONS (2)
  - Intentional product misuse [Recovered/Resolved]
  - Drug ineffective [Unknown]

NARRATIVE: CASE EVENT DATE: 2014
